FAERS Safety Report 8587784-6 (Version None)
Quarter: 2012Q3

REPORT INFORMATION
  Report Type: 
  Country: None (occurrence: None)
  Receive Date: 20120813
  Receipt Date: 20120802
  Transmission Date: 20120928
  Serious: Yes (Hospitalization)
  Sender: FDA-Public Use
  Company Number: DZ-BIOGENIDEC-2012BI015013

PATIENT
  Age: 22 Year
  Sex: Female

DRUGS (2)
  1. TYSABRI [Suspect]
     Route: 042
     Dates: end: 20120417
  2. TYSABRI [Suspect]
     Indication: RELAPSING-REMITTING MULTIPLE SCLEROSIS
     Route: 042
     Dates: start: 20111201, end: 20120201

REACTIONS (5)
  - HEMIPARESIS [None]
  - ASTHENIA [None]
  - INFECTION [None]
  - SOMNOLENCE [None]
  - NUCLEAR MAGNETIC RESONANCE IMAGING ABNORMAL [None]
